FAERS Safety Report 4764346-X (Version None)
Quarter: 2005Q3

REPORT INFORMATION
  Report Type: 
  Country: None (occurrence: None)
  Receive Date: 20050907
  Receipt Date: 20050829
  Transmission Date: 20060218
  Serious: Yes (Disabling)
  Sender: FDA-Public Use
  Company Number: 200512708GDS

PATIENT
  Age: 69 Year
  Sex: Male

DRUGS (2)
  1. SIPRION (CIPROFLOXACIN) [Suspect]
     Indication: GASTROENTERITIS SALMONELLA
     Dosage: 1000 MG, TOTAL DAILY, ORAL
     Route: 048
     Dates: start: 20050301, end: 20050314
  2. SOLOMET [Concomitant]

REACTIONS (4)
  - CONDITION AGGRAVATED [None]
  - MUSCLE RUPTURE [None]
  - TENDONITIS [None]
  - TREATMENT NONCOMPLIANCE [None]
